FAERS Safety Report 8263810-9 (Version None)
Quarter: 2012Q2

REPORT INFORMATION
  Report Type: 
  Country: None (occurrence: None)
  Receive Date: 20120405
  Receipt Date: 20120327
  Transmission Date: 20120825
  Serious: Yes (Other)
  Sender: FDA-Public Use
  Company Number: JP-ALLERGAN-1204560US

PATIENT
  Age: 32 Year
  Sex: Male

DRUGS (1)
  1. EPINASTINE HYDROCHLORIDE [Suspect]
     Indication: RHINITIS
     Dosage: 10 MG, QD
     Route: 048

REACTIONS (4)
  - COLD SWEAT [None]
  - CHILLS [None]
  - HYPOAESTHESIA [None]
  - NAUSEA [None]
